FAERS Safety Report 20082071 (Version 1)
Quarter: 2021Q4

REPORT INFORMATION
  Report Type: Report from Study
  Country: JP (occurrence: JP)
  Receive Date: 20211117
  Receipt Date: 20211117
  Transmission Date: 20220303
  Serious: Yes (Other)
  Sender: FDA-Public Use
  Company Number: JP-DSJP-DSJ-2021-137859

PATIENT
  Age: 76 Year
  Sex: Male

DRUGS (5)
  1. PRASUGREL HYDROCHLORIDE [Suspect]
     Active Substance: PRASUGREL HYDROCHLORIDE
     Indication: Percutaneous coronary intervention
     Dosage: 3.75 MG, QD
     Route: 065
     Dates: start: 20160705, end: 20170502
  2. PRASUGREL HYDROCHLORIDE [Suspect]
     Active Substance: PRASUGREL HYDROCHLORIDE
     Indication: Angina pectoris
  3. TALTIRELIN [Concomitant]
     Active Substance: TALTIRELIN
     Dosage: UNK
     Route: 065
  4. NEXIUM [ESOMEPRAZOLE MAGNESIUM TRIHYDRATE] [Concomitant]
     Dosage: UNK
     Route: 065
  5. ASPIRIN [Concomitant]
     Active Substance: ASPIRIN
     Dosage: UNK
     Route: 065

REACTIONS (1)
  - Subdural haematoma [Recovered/Resolved]
